FAERS Safety Report 13263499 (Version 2)
Quarter: 2018Q1

REPORT INFORMATION
  Report Type: Report from Study
  Country: FR (occurrence: FR)
  Receive Date: 20170223
  Receipt Date: 20180104
  Transmission Date: 20180508
  Serious: Yes (Hospitalization)
  Sender: FDA-Public Use
  Company Number: FR-ROCHE-1893191

PATIENT
  Age: 69 Year
  Sex: Female

DRUGS (17)
  1. NEBILOX [Concomitant]
     Active Substance: NEBIVOLOL HYDROCHLORIDE
  2. SPECIAFOLDINE [Concomitant]
     Active Substance: FOLIC ACID
  3. RITUXIMAB. [Suspect]
     Active Substance: RITUXIMAB
     Indication: VASCULITIS NECROTISING
     Route: 041
     Dates: start: 20160112, end: 20160112
  4. CALCIDIA [Concomitant]
     Active Substance: CALCIUM POLYCARBOPHIL
  5. PERINDOPRIL [Concomitant]
     Active Substance: PERINDOPRIL
  6. BACTRIM [Concomitant]
     Active Substance: SULFAMETHOXAZOLE\TRIMETHOPRIM
  7. RITUXIMAB. [Suspect]
     Active Substance: RITUXIMAB
     Route: 041
     Dates: start: 20160711, end: 20160711
  8. ZELITREX [Concomitant]
     Active Substance: VALACYCLOVIR HYDROCHLORIDE
  9. VALACICLOVIR [Concomitant]
     Active Substance: VALACYCLOVIR HYDROCHLORIDE
  10. LEVOTHYROX [Concomitant]
     Active Substance: LEVOTHYROXINE
  11. LASILIX RETARD [Concomitant]
     Active Substance: FUROSEMIDE
  12. ATORVASTATINE [Concomitant]
     Active Substance: ATORVASTATIN
  13. DEDROGYL [Concomitant]
     Active Substance: CALCIFEDIOL
  14. OMEPRAZOLE. [Concomitant]
     Active Substance: OMEPRAZOLE
  15. PARACETAMOL [Concomitant]
     Active Substance: ACETAMINOPHEN
  16. FORLAX [Concomitant]
     Active Substance: POLYETHYLENE GLYCOL 4000
  17. PARACETAMOL CODEINE [Concomitant]
     Active Substance: ACETAMINOPHEN\CODEINE PHOSPHATE

REACTIONS (2)
  - Pulmonary embolism [Recovered/Resolved]
  - Sepsis [Recovered/Resolved]

NARRATIVE: CASE EVENT DATE: 20161217
